FAERS Safety Report 11915284 (Version 2)
Quarter: 2016Q1

REPORT INFORMATION
  Report Type: Spontaneous
  Country: NL (occurrence: NL)
  Receive Date: 20160114
  Receipt Date: 20160222
  Transmission Date: 20160526
  Serious: Yes (Hospitalization)
  Sender: FDA-Public Use
  Company Number: NL-009507513-1601NLD002826

PATIENT
  Age: 1 Day
  Sex: Female
  Weight: 3 kg

DRUGS (2)
  1. CLOMIPRAMINE HYDROCHLORIDE. [Suspect]
     Active Substance: CLOMIPRAMINE HYDROCHLORIDE
     Indication: DEPRESSION
     Dosage: 200 MG
     Route: 064
     Dates: start: 2010
  2. MIRTAZAPINE ORODISPERGEERBARE TABLETTEN [Suspect]
     Active Substance: MIRTAZAPINE
     Dosage: 15 MG
     Route: 064
     Dates: start: 2010

REACTIONS (1)
  - Drug withdrawal syndrome neonatal [Recovering/Resolving]

NARRATIVE: CASE EVENT DATE: 20151224
